FAERS Safety Report 25734388 (Version 1)
Quarter: 2025Q3

REPORT INFORMATION
  Report Type: Spontaneous
  Country: US (occurrence: US)
  Receive Date: 20250828
  Receipt Date: 20250828
  Transmission Date: 20251021
  Serious: Yes (Hospitalization)
  Sender: LEXICON PHARMACEUTICALS
  Company Number: US-LEX-000799

PATIENT
  Sex: Male
  Weight: 83.915 kg

DRUGS (1)
  1. INPEFA [Suspect]
     Active Substance: SOTAGLIFLOZIN
     Indication: Cardiac failure congestive
     Route: 048

REACTIONS (4)
  - Fall [Unknown]
  - Cervical vertebral fracture [Unknown]
  - Therapy interrupted [Unknown]
  - Femur fracture [Unknown]
